FAERS Safety Report 23645652 (Version 2)
Quarter: 2024Q1

REPORT INFORMATION
  Report Type: Report from Study
  Country: CR (occurrence: CR)
  Receive Date: 20240319
  Receipt Date: 20240322
  Transmission Date: 20240410
  Serious: Yes (Hospitalization, Other)
  Sender: FDA-Public Use
  Company Number: CR-NOVOPROD-1188475

PATIENT
  Age: 37 Year
  Sex: Female
  Weight: 97 kg

DRUGS (1)
  1. OZEMPIC [Suspect]
     Active Substance: SEMAGLUTIDE
     Indication: Obesity
     Dosage: 0.5 MG, QW
     Route: 058
     Dates: start: 20231013

REACTIONS (5)
  - Cholelithiasis [Recovering/Resolving]
  - Obstructive pancreatitis [Recovering/Resolving]
  - Gastritis [Recovered/Resolved]
  - Kidney infection [Recovered/Resolved]
  - Product use in unapproved indication [Unknown]

NARRATIVE: CASE EVENT DATE: 20231013
